FAERS Safety Report 13965931 (Version 1)
Quarter: 2017Q3

REPORT INFORMATION
  Report Type: Report from Study
  Country: FR (occurrence: FR)
  Receive Date: 20170913
  Receipt Date: 20170913
  Transmission Date: 20171128
  Serious: Yes (Other)
  Sender: FDA-Public Use
  Company Number: FR-PFIZER INC-2016113354

PATIENT
  Age: 65 Year
  Sex: Male
  Weight: 83 kg

DRUGS (3)
  1. BISOPROL [Concomitant]
     Dosage: 5 MG, 1X/DAY
  2. CYTARABINE. [Suspect]
     Active Substance: CYTARABINE
     Indication: ACUTE MYELOID LEUKAEMIA
     Dosage: 200 MG/M2 (400 MG), DAILY FROM D1 TO D7; INDUCTION
     Dates: start: 20151222, end: 20151228
  3. MYLOTARG [Suspect]
     Active Substance: GEMTUZUMAB OZOGAMICIN
     Indication: ACUTE MYELOID LEUKAEMIA
     Dosage: 3 MG/M2 (6 MG) DAILY ON D1 AND D4; INDUCTION
     Dates: start: 20151222, end: 20151225

REACTIONS (1)
  - Thrombophlebitis septic [Recovered/Resolved]

NARRATIVE: CASE EVENT DATE: 20160104
